FAERS Safety Report 6523156-3 (Version None)
Quarter: 2009Q4

REPORT INFORMATION
  Report Type: 
  Country: None (occurrence: None)
  Receive Date: 20091222
  Receipt Date: 20091211
  Transmission Date: 20100525
  Serious: Yes (Other)
  Sender: FDA-Public Use
  Company Number: 2009AP005038

PATIENT
  Age: 76 Year
  Sex: Male

DRUGS (9)
  1. SERTRALINE HYDROCHLORIDE [Suspect]
     Indication: DEPRESSED MOOD
     Dosage: 50 MG; PO
     Route: 048
  2. MIRAPEXIN (PRAMIPEXOLE DIHYDROCHLORIDE) [Suspect]
     Indication: PARKINSON'S DISEASE
     Dosage: PO
     Route: 048
  3. CIMETIDINE [Concomitant]
  4. FUROSEMIDE [Concomitant]
  5. BENSERAZIDE HYDROCHLORIDE (BENSERAZIDE HYDROCHLORIDE) [Concomitant]
  6. LEVODOPA (LEVODOPA) [Concomitant]
  7. QUININE SULFATE [Concomitant]
  8. SPIRONOLACTONE [Concomitant]
  9. MORPHINE SULFATE INJ [Concomitant]

REACTIONS (3)
  - CYANOPSIA [None]
  - VISUAL IMPAIRMENT [None]
  - VITREOUS FLOATERS [None]
